FAERS Safety Report 14740293 (Version 1)
Quarter: 2018Q2

REPORT INFORMATION
  Report Type: Spontaneous
  Country: US (occurrence: US)
  Receive Date: 20180404
  Receipt Date: 20180404
  Transmission Date: 20180711
  Serious: Yes (Hospitalization)
  Sender: FDA-Public Use
  Company Number: None

PATIENT
  Sex: Male

DRUGS (14)
  1. GLYCERIN RECTSUPP [Concomitant]
  2. SPIRONOLACTONE. [Concomitant]
     Active Substance: SPIRONOLACTONE
  3. ENALAPRIL [Concomitant]
     Active Substance: ENALAPRIL
  4. MVI [Concomitant]
     Active Substance: VITAMINS
  5. MORPHINE [Concomitant]
     Active Substance: MORPHINE
  6. FERROUS SULFATE. [Concomitant]
     Active Substance: FERROUS SULFATE
  7. FUROSEMIDE. [Concomitant]
     Active Substance: FUROSEMIDE
  8. RANITIDINE. [Concomitant]
     Active Substance: RANITIDINE
     Indication: PRODUCT USED FOR UNKNOWN INDICATION
  9. BABY IRON- [Concomitant]
  10. TRACLEER [Suspect]
     Active Substance: BOSENTAN
     Indication: PULMONARY ARTERIAL HYPERTENSION
     Dosage: ?          OTHER FREQUENCY:15.62MG VIA NG BID;?
     Route: 048
     Dates: start: 201801, end: 201802
  11. TAMIFLU [Concomitant]
     Active Substance: OSELTAMIVIR PHOSPHATE
  12. OMEPRAZOLE. [Concomitant]
     Active Substance: OMEPRAZOLE
  13. CLONIDINE. [Concomitant]
     Active Substance: CLONIDINE
  14. SIMETHICONE (DIMETHICONE) [Concomitant]
     Active Substance: DIMETHICONE

REACTIONS (7)
  - Respiratory failure [None]
  - Upper respiratory tract infection [None]
  - Hypoxia [None]
  - Acute hepatic failure [None]
  - Toxicity to various agents [None]
  - Hepatic congestion [None]
  - Cardiac failure [None]

NARRATIVE: CASE EVENT DATE: 20180404
